FAERS Safety Report 18065106 (Version 1)
Quarter: 2020Q3

REPORT INFORMATION
  Report Type: Spontaneous
  Country: US (occurrence: US)
  Receive Date: 20200724
  Receipt Date: 20200724
  Transmission Date: 20201103
  Serious: Yes (Hospitalization, Other)
  Sender: FDA-Public Use
  Company Number: US-ELI_LILLY_AND_COMPANY-US202007006163

PATIENT
  Age: 55 Year
  Sex: Female

DRUGS (2)
  1. METFORMIN [Concomitant]
     Active Substance: METFORMIN HYDROCHLORIDE
     Indication: TYPE 1 DIABETES MELLITUS
     Dosage: 500 MG, BID
  2. HUMULIN 70/30 [Suspect]
     Active Substance: INSULIN HUMAN
     Indication: TYPE 1 DIABETES MELLITUS
     Dosage: 70?80 U, DAILY
     Route: 058
     Dates: start: 1999

REACTIONS (3)
  - Coma [Recovered/Resolved]
  - Amnesia [Not Recovered/Not Resolved]
  - Catatonia [Recovered/Resolved]

NARRATIVE: CASE EVENT DATE: 202001
